FAERS Safety Report 24897339 (Version 1)
Quarter: 2025Q1

REPORT INFORMATION
  Report Type: Report from Study
  Country: DE (occurrence: DE)
  Receive Date: 20250129
  Receipt Date: 20250129
  Transmission Date: 20250409
  Serious: Yes (Death, Other)
  Sender: TAKEDA
  Company Number: DE-JNJFOC-20250162141

PATIENT
  Sex: Female
  Weight: 60 kg

DRUGS (2)
  1. BORTEZOMIB [Suspect]
     Active Substance: BORTEZOMIB
     Indication: Plasma cell myeloma
     Dates: start: 20241209, end: 20241223
  2. DARATUMUMAB\HYALURONIDASE-FIHJ [Suspect]
     Active Substance: DARATUMUMAB\HYALURONIDASE-FIHJ
     Indication: Plasma cell myeloma
     Dates: start: 20241209, end: 20241223

REACTIONS (2)
  - Decubitus ulcer [Fatal]
  - Septic shock [Fatal]

NARRATIVE: CASE EVENT DATE: 20250112
